FAERS Safety Report 10954977 (Version 4)
Quarter: 2015Q2

REPORT INFORMATION
  Report Type: Spontaneous
  Country: TR (occurrence: TR)
  Receive Date: 20150325
  Receipt Date: 20150428
  Transmission Date: 20150821
  Serious: Yes (Other)
  Sender: FDA-Public Use
  Company Number: TR-GILEAD-2015-0144102

PATIENT
  Age: 83 Year
  Sex: Female

DRUGS (8)
  1. RANOLAZINE [Suspect]
     Active Substance: RANOLAZINE
     Indication: ANGINA PECTORIS
     Dosage: 375 MG, BID
     Route: 065
     Dates: start: 20150313, end: 20150314
  2. BELOC-ZOK COMP [Concomitant]
     Active Substance: HYDROCHLOROTHIAZIDE\METOPROLOL SUCCINATE
     Dosage: 100 MG, QD
  3. VASTAREL [Concomitant]
     Active Substance: TRIMETAZIDINE DIHYDROCHLORIDE
     Dosage: 20 MG, BID
  4. LERCADIP                           /01366401/ [Concomitant]
     Dosage: 20 MG, QD
  5. ASPIRIN. [Concomitant]
     Active Substance: ASPIRIN
     Dosage: 100 MG, BID
  6. PLAVIX [Concomitant]
     Active Substance: CLOPIDOGREL BISULFATE
     Dosage: 75 MG, QD
  7. LASIX [Concomitant]
     Active Substance: FUROSEMIDE
     Dosage: 1 DF, QOD
  8. ZOPROTEC [Concomitant]
     Active Substance: HYDROCHLOROTHIAZIDE\ZOFENOPRIL
     Indication: HYPERTENSION
     Dosage: 30 MG, QD

REACTIONS (2)
  - Blood pressure increased [Unknown]
  - Nausea [Unknown]

NARRATIVE: CASE EVENT DATE: 20150313
